FAERS Safety Report 8538630-8 (Version None)
Quarter: 2012Q3

REPORT INFORMATION
  Report Type: 
  Country: None (occurrence: None)
  Receive Date: 20120718
  Receipt Date: 20120718
  Transmission Date: 20120928
  Serious: No
  Sender: FDA-Public Use
  Company Number: None

PATIENT
  Age: 54 Year
  Sex: Female
  Weight: 82.5547 kg

DRUGS (1)
  1. GABAPENTIN [Suspect]
     Indication: PAIN IN EXTREMITY
     Dosage: 1 CAP BY MOUTH AT BEDTIME 3 DAYS ; 1 CAP BY MOUTH 2 TIMES/DAY
     Route: 048
     Dates: start: 20120613

REACTIONS (1)
  - SPEECH DISORDER [None]
